FAERS Safety Report 9249635 (Version 2)
Quarter: 2014Q1

REPORT INFORMATION
  Report Type: Spontaneous
  Country: US (occurrence: US)
  Receive Date: 20130423
  Receipt Date: 20140117
  Transmission Date: 20141002
  Serious: Yes (Other)
  Sender: FDA-Public Use
  Company Number: US-PERRIGO-13US004204

PATIENT
  Age: 75 Year
  Sex: Female
  Weight: 68.03 kg

DRUGS (3)
  1. LICE SHMPO LIQ 866 [Suspect]
     Indication: LICE INFESTATION
     Dosage: 1 APPLICATION, ONCE
     Route: 061
     Dates: start: 20110730, end: 20110730
  2. VITAMINS [Concomitant]
     Indication: ROUTINE HEALTH MAINTENANCE
     Dosage: UNK, UNK
     Route: 065
  3. BUFFERIN [Concomitant]
     Indication: PAIN
     Dosage: UNK, AS NEEDED
     Route: 065

REACTIONS (8)
  - Accidental exposure to product [Recovering/Resolving]
  - Chemical burns of eye [Recovering/Resolving]
  - Keratitis [Unknown]
  - Visual acuity reduced [Not Recovered/Not Resolved]
  - Vision blurred [Recovering/Resolving]
  - Eye pain [Recovered/Resolved]
  - Lacrimation increased [Not Recovered/Not Resolved]
  - Excessive eye blinking [Unknown]
